FAERS Safety Report 17614871 (Version 5)
Quarter: 2020Q2

REPORT INFORMATION
  Report Type: Spontaneous
  Country: US (occurrence: US)
  Receive Date: 20200402
  Receipt Date: 20200511
  Transmission Date: 20200713
  Serious: Yes (Hospitalization, Other)
  Sender: FDA-Public Use
  Company Number: US-GLAXOSMITHKLINE-US2020AMR057345

PATIENT
  Sex: Female

DRUGS (2)
  1. ZEJULA [Suspect]
     Active Substance: NIRAPARIB
     Indication: OVARIAN CANCER
     Dosage: 300 MG, QD
     Dates: start: 20200312
  2. ZEJULA [Suspect]
     Active Substance: NIRAPARIB
     Dosage: 200 MG, QD
     Dates: end: 20200425

REACTIONS (9)
  - Pulmonary thrombosis [Unknown]
  - Malaise [Unknown]
  - Vomiting [Unknown]
  - Tinnitus [Unknown]
  - Nausea [Unknown]
  - Heart rate increased [Unknown]
  - Product dose omission [Unknown]
  - Pneumonia [Unknown]
  - Headache [Unknown]
